FAERS Safety Report 10744668 (Version 1)
Quarter: 2015Q1

REPORT INFORMATION
  Report Type: Spontaneous
  Country: US (occurrence: None)
  Receive Date: 20150126
  Receipt Date: 20150126
  Transmission Date: 20150721
  Serious: No
  Sender: FDA-Public Use
  Company Number: None

PATIENT
  Age: 36 Year
  Sex: Female
  Weight: 49.9 kg

DRUGS (1)
  1. VENLAFAXINE [Suspect]
     Active Substance: VENLAFAXINE HYDROCHLORIDE
     Indication: HOT FLUSH
     Dosage: 1 PILL, ONCE DAILY, TAKEN BY MOUTH
     Route: 048
     Dates: start: 20130815, end: 20140711

REACTIONS (17)
  - Sexual dysfunction [None]
  - Fatigue [None]
  - Vertigo [None]
  - Asthenia [None]
  - Exaggerated startle response [None]
  - Drug withdrawal syndrome [None]
  - Impaired driving ability [None]
  - Depression [None]
  - Dizziness [None]
  - Influenza like illness [None]
  - Pain [None]
  - Drug ineffective [None]
  - Insomnia [None]
  - Mania [None]
  - Anorgasmia [None]
  - Poor quality sleep [None]
  - Quality of life decreased [None]

NARRATIVE: CASE EVENT DATE: 20130815
